FAERS Safety Report 7153806-2 (Version None)
Quarter: 2010Q4

REPORT INFORMATION
  Report Type: 
  Country: None (occurrence: None)
  Receive Date: 20101213
  Receipt Date: 20100315
  Transmission Date: 20110411
  Serious: No
  Sender: FDA-Public Use
  Company Number: US-ABBOTT-10P-163-0630051-00

PATIENT
  Sex: Male
  Weight: 108.96 kg

DRUGS (5)
  1. MERIDIA [Suspect]
     Indication: WEIGHT CONTROL
     Route: 048
     Dates: start: 20080101
  2. MERIDIA [Suspect]
     Route: 048
     Dates: start: 20080101
  3. MERIDIA [Suspect]
     Route: 048
  4. FOLIC ACID [Concomitant]
     Indication: BLOOD HOMOCYSTEINE INCREASED
     Route: 048
  5. LOVASTATIN [Concomitant]
     Indication: BLOOD CHOLESTEROL INCREASED
     Route: 048

REACTIONS (2)
  - PSYCHOTIC DISORDER [None]
  - SENSORY DISTURBANCE [None]
